FAERS Safety Report 24987068 (Version 1)
Quarter: 2025Q1

REPORT INFORMATION
  Report Type: Spontaneous
  Country: GB (occurrence: GB)
  Receive Date: 20250219
  Receipt Date: 20250219
  Transmission Date: 20250409
  Serious: Yes (Other)
  Sender: SANDOZ
  Company Number: GB-MHRA-TPP10518993C8654923YC1739628503641

PATIENT
  Age: 19 Year
  Sex: Female
  Weight: 86 kg

DRUGS (7)
  1. CLARITHROMYCIN [Suspect]
     Active Substance: CLARITHROMYCIN
     Indication: Ill-defined disorder
     Dosage: 5 DAY COURSE
     Route: 048
     Dates: start: 20250214
  2. AMOXICILLIN [Concomitant]
     Active Substance: AMOXICILLIN
     Indication: Ill-defined disorder
     Dosage: (FOR 5 DAY COURSE)
     Route: 048
     Dates: start: 20250212
  3. CIPROFLOXACIN [Concomitant]
     Active Substance: CIPROFLOXACIN
     Indication: Ill-defined disorder
     Dosage: 4 DF, Q12H
     Route: 065
     Dates: start: 20250214, end: 20250215
  4. AMOXICILLIN\CLAVULANATE POTASSIUM [Concomitant]
     Active Substance: AMOXICILLIN\CLAVULANATE POTASSIUM
     Indication: Ill-defined disorder
     Dosage: 1 DF, Q8H
     Route: 048
     Dates: start: 20250215
  5. OTOMIZE [Concomitant]
     Indication: Ill-defined disorder
     Dosage: INTO AFFECTED EAR
     Route: 001
     Dates: start: 20250212
  6. QVAR [Concomitant]
     Active Substance: BECLOMETHASONE DIPROPIONATE
     Indication: Ill-defined disorder
     Route: 055
     Dates: start: 20231004
  7. ALBUTEROL [Concomitant]
     Active Substance: ALBUTEROL
     Indication: Ill-defined disorder
     Route: 055
     Dates: start: 20231004

REACTIONS (1)
  - Lip swelling [Recovering/Resolving]

NARRATIVE: CASE EVENT DATE: 20250215
